FAERS Safety Report 10457693 (Version 4)
Quarter: 2015Q3

REPORT INFORMATION
  Report Type: Report from Study
  Country: TW (occurrence: TW)
  Receive Date: 20140916
  Receipt Date: 20150920
  Transmission Date: 20151125
  Serious: Yes (Hospitalization)
  Sender: FDA-Public Use
  Company Number: TW-MERCK-1401TWN000386

PATIENT
  Age: 40 Year
  Sex: Female
  Weight: 49.9 kg

DRUGS (21)
  1. NOVAMIN (AMIKACIN SULFATE) [Concomitant]
     Active Substance: AMIKACIN SULFATE
     Indication: VOMITING
     Dosage: 1 TAB, TID
     Route: 048
     Dates: start: 20131219
  2. ZALAIN [Concomitant]
     Indication: CANDIDA INFECTION
     Dosage: UNK, BID
     Route: 061
     Dates: start: 20131219
  3. STILNOX [Concomitant]
     Active Substance: ZOLPIDEM TARTRATE
     Indication: INSOMNIA
     Dosage: 1 TAB, HS
     Route: 048
     Dates: start: 20120105
  4. PEMBROLIZUMAB. [Suspect]
     Active Substance: PEMBROLIZUMAB
     Indication: NON-SMALL CELL LUNG CANCER
     Dosage: 10 MG/KG, Q3W
     Route: 042
     Dates: start: 20131205, end: 20131226
  5. LOPEDIN [Concomitant]
     Indication: PROPHYLAXIS AGAINST DIARRHOEA
     Dosage: 1 CAPSULE, PRN
     Route: 048
     Dates: start: 20131121
  6. ACTEIN [Concomitant]
     Indication: COUGH
     Dosage: 1 TAB, BID
     Route: 048
     Dates: start: 20131226
  7. TINTEN [Concomitant]
     Indication: ADVERSE EVENT
     Dosage: 1 TABLET, Q12H
     Route: 048
     Dates: start: 20131122
  8. REGROW SR [Concomitant]
     Indication: COUGH
     Dosage: 1 TABLET, BID
     Route: 048
     Dates: start: 20131219
  9. COUGH MIXTURE (GLYCERIN (+) PLATYCODON (+) SODIUM CITRATE) [Concomitant]
     Indication: COUGH
     Dosage: 10 ML, TID (120 ML/BOTTLE)
     Route: 048
     Dates: start: 20131226
  10. PARAMOL (ACETAMINOPHEN) [Concomitant]
     Indication: HEADACHE
     Dosage: 1 TABLET, QID
     Route: 048
     Dates: start: 20131226
  11. NOVAMIN (AMIKACIN SULFATE) [Concomitant]
     Active Substance: AMIKACIN SULFATE
     Indication: NAUSEA
  12. ULTRACET [Concomitant]
     Active Substance: ACETAMINOPHEN\TRAMADOL HYDROCHLORIDE
     Indication: HEADACHE
     Dosage: 1 TAB, BID
     Route: 048
     Dates: start: 20131219
  13. TETRACYCLINE [Concomitant]
     Active Substance: TETRACYCLINE
     Indication: SKIN FISSURES
     Dosage: STRENGTH: 10 MG/1G 1%, DOSE UNKNOWN, BID
     Route: 061
     Dates: start: 20131219
  14. MEGEST (MEGESTROL ACETATE) [Concomitant]
     Indication: DECREASED APPETITE
     Dosage: 2 ML, QD, STRENGTH: 40 MG/1ML
     Route: 048
     Dates: start: 20131219
  15. GASTER [Concomitant]
     Active Substance: FAMOTIDINE
     Indication: ADVERSE EVENT
     Dosage: 1 TABLET, Q12H
     Route: 048
     Dates: start: 20131121
  16. NINCORT [Concomitant]
     Indication: DERMATITIS
     Dosage: UNK
     Route: 048
     Dates: start: 20130918
  17. SOLAXIN [Concomitant]
     Indication: ABDOMINAL PAIN
     Dosage: UNK
     Dates: start: 20131016
  18. ESPERSON [Concomitant]
     Indication: ECZEMA
     Dosage: UNK
     Route: 061
     Dates: start: 20131031
  19. REMERON SOLTAB [Concomitant]
     Active Substance: MIRTAZAPINE
     Indication: DEPRESSION
     Dosage: 1 DF,HS,30MG
     Route: 048
     Dates: start: 20130109
  20. CB OINTMENT STRONG [Concomitant]
     Indication: DERMATITIS
     Dosage: UNK, PRN (AS ORDERED)
     Route: 061
     Dates: start: 20131219
  21. MAGNESIUM OXIDE. [Concomitant]
     Active Substance: MAGNESIUM OXIDE
     Indication: CONSTIPATION
     Dosage: 2 TAB, TID
     Route: 048
     Dates: start: 20131219

REACTIONS (2)
  - Muscular weakness [Recovered/Resolved]
  - Dysuria [Unknown]

NARRATIVE: CASE EVENT DATE: 20131227
